FAERS Safety Report 17530287 (Version 1)
Quarter: 2020Q1

REPORT INFORMATION
  Report Type: Spontaneous
  Country: RO (occurrence: RO)
  Receive Date: 20200312
  Receipt Date: 20200312
  Transmission Date: 20200409
  Serious: Yes (Death)
  Sender: FDA-Public Use
  Company Number: RO-ASTRAZENECA-2020SE36534

PATIENT
  Age: 63 Year
  Sex: Male

DRUGS (5)
  1. BRILIQUE [Suspect]
     Active Substance: TICAGRELOR
     Indication: ACUTE MYOCARDIAL INFARCTION
     Dosage: 90 MG X2/DAY+ASA
     Route: 048
  2. BRILIQUE [Suspect]
     Active Substance: TICAGRELOR
     Indication: STENT PLACEMENT
     Dosage: 90 MG X2/DAY+ASA
     Route: 048
  3. PRESTARIUM [Concomitant]
     Active Substance: PERINDOPRIL
     Dosage: UNKNOWN
     Route: 065
  4. ANTIDIABETICS [Concomitant]
     Dosage: UNKNOWN
     Route: 065
  5. METOPROLOL. [Concomitant]
     Active Substance: METOPROLOL
     Dosage: UNKNOWN
     Route: 065

REACTIONS (1)
  - Death [Fatal]
